FAERS Safety Report 16644992 (Version 1)
Quarter: 2019Q3

REPORT INFORMATION
  Report Type: Spontaneous
  Country: US (occurrence: US)
  Receive Date: 20190729
  Receipt Date: 20190729
  Transmission Date: 20191004
  Serious: No
  Sender: FDA-Public Use
  Company Number: US-SA-2019SA204356

PATIENT
  Sex: Female

DRUGS (4)
  1. MUPIROCIN. [Concomitant]
     Active Substance: MUPIROCIN
  2. DUPIXENT [Suspect]
     Active Substance: DUPILUMAB
     Indication: DERMATITIS ATOPIC
     Dosage: 300 MG, QOW
     Route: 058
     Dates: start: 20190605
  3. METRONIDAZOLE. [Concomitant]
     Active Substance: METRONIDAZOLE
  4. NITROFURANTOIN MONOHYDRATE MACROCRYSTALS [Concomitant]
     Active Substance: NITROFURANTOIN\NITROFURANTOIN MONOHYDRATE

REACTIONS (1)
  - Exposure during pregnancy [Unknown]
